FAERS Safety Report 6130057-1 (Version None)
Quarter: 2009Q1

REPORT INFORMATION
  Report Type: 
  Country: None (occurrence: None)
  Receive Date: 20090324
  Receipt Date: 20090318
  Transmission Date: 20090719
  Serious: Yes (Hospitalization)
  Sender: FDA-Public Use
  Company Number: JP-ASTRAZENECA-2009AP01220

PATIENT
  Age: 79 Year
  Sex: Male

DRUGS (3)
  1. ZOLADEX [Suspect]
     Indication: PROSTATE CANCER
     Route: 058
     Dates: start: 20070101
  2. PL [Suspect]
     Dosage: DOSE UNKNOWN
     Route: 048
  3. CEFZON [Suspect]
     Dosage: DOSE UNKNOWN
     Route: 048

REACTIONS (1)
  - INTERSTITIAL LUNG DISEASE [None]
